FAERS Safety Report 22688763 (Version 25)
Quarter: 2024Q4

REPORT INFORMATION
  Report Type: Report from Study
  Country: CO (occurrence: CO)
  Receive Date: 20230710
  Receipt Date: 20241009
  Transmission Date: 20250115
  Serious: Yes (Death, Life-Threatening, Hospitalization, Other)
  Sender: IPSEN
  Company Number: CO-IPSEN Group, Research and Development-2023-13861

PATIENT
  Age: 64 Year
  Sex: Female
  Weight: 48 kg

DRUGS (18)
  1. LANREOTIDE ACETATE [Suspect]
     Active Substance: LANREOTIDE ACETATE
     Indication: Neuroendocrine tumour
     Route: 058
     Dates: start: 20211001
  2. LANREOTIDE ACETATE [Suspect]
     Active Substance: LANREOTIDE ACETATE
     Route: 058
     Dates: start: 20230316
  3. LANREOTIDE ACETATE [Suspect]
     Active Substance: LANREOTIDE ACETATE
     Route: 058
     Dates: start: 20240214, end: 20240921
  4. PREDNISOLONE [Concomitant]
     Active Substance: PREDNISOLONE
     Dosage: 10 TABLETS DAILY FOR 10 DAYS AFTER LUTETIUM
     Route: 048
     Dates: start: 20221208
  5. DALTEPARIN [Concomitant]
     Active Substance: DALTEPARIN
     Indication: Thrombosis
     Dosage: 1 DAILY APPLICATION
     Route: 048
     Dates: start: 20211201
  6. DALTEPARIN [Concomitant]
     Active Substance: DALTEPARIN
     Indication: Coagulopathy
  7. OMEPRAZOLE [Concomitant]
     Active Substance: OMEPRAZOLE
     Indication: Gastritis
     Dosage: 1 TABLET EVERY 24 HOURS
     Route: 048
     Dates: start: 20230201
  8. MILPAX [Concomitant]
     Indication: Gastritis
     Dosage: 1 TABLESPOON EVERY 24 HOURS
     Route: 048
     Dates: start: 202212
  9. MILPAX [Concomitant]
     Dosage: 1 UNIT EVERY 24 HOURS
     Route: 048
     Dates: start: 20230201
  10. FILGRASTIM [Concomitant]
     Active Substance: FILGRASTIM
     Dates: start: 20230919
  11. SIMETIL [Concomitant]
     Indication: Gastritis
     Dosage: 10 MG, 1 TABLET EVERY 8 ?HOURS
     Route: 048
     Dates: start: 202307
  12. ALUMINIUM HYDROXIDE;SIMETICONE [Concomitant]
     Dosage: 10 ML AFTER EACH ?MEAL
     Route: 048
     Dates: start: 20230301
  13. RIVAROXABAN [Concomitant]
     Active Substance: RIVAROXABAN
     Indication: Anticoagulant therapy
     Dosage: 1 TABLET EVERY 24 HOURS
     Route: 048
  14. RIVAROXABAN [Concomitant]
     Active Substance: RIVAROXABAN
     Indication: Portal hypertension
     Route: 048
     Dates: start: 2021
  15. IRON [Concomitant]
     Active Substance: IRON
  16. VITAMIN B12 [Concomitant]
     Active Substance: CYANOCOBALAMIN
     Route: 048
  17. FOLIC ACID [Concomitant]
     Active Substance: FOLIC ACID
     Dosage: 1 TABLET EVERY 24 HOURS
     Dates: start: 202404
  18. LUTETIUM [Concomitant]
     Indication: Neuroendocrine tumour
     Dates: start: 202305

REACTIONS (67)
  - Malignant neoplasm progression [Fatal]
  - Vomiting [Not Recovered/Not Resolved]
  - Decreased appetite [Recovered/Resolved]
  - Vulvitis [Recovered/Resolved]
  - Intra-abdominal fluid collection [Recovered/Resolved]
  - Nausea [Not Recovered/Not Resolved]
  - Skin laxity [Not Recovered/Not Resolved]
  - Cyst [Not Recovered/Not Resolved]
  - Anaemia [Not Recovered/Not Resolved]
  - Alopecia [Not Recovered/Not Resolved]
  - Diarrhoea [Not Recovered/Not Resolved]
  - Blood potassium decreased [Not Recovered/Not Resolved]
  - Blood magnesium decreased [Not Recovered/Not Resolved]
  - Abdominal distension [Not Recovered/Not Resolved]
  - Injection site mass [Not Recovered/Not Resolved]
  - Myalgia [Not Recovered/Not Resolved]
  - Insomnia [Not Recovered/Not Resolved]
  - Weight decreased [Not Recovered/Not Resolved]
  - Venous thrombosis [Unknown]
  - Metastases to liver [Not Recovered/Not Resolved]
  - Ascites [Not Recovered/Not Resolved]
  - Dizziness [Not Recovered/Not Resolved]
  - Hyporeflexia [Not Recovered/Not Resolved]
  - Muscular weakness [Not Recovered/Not Resolved]
  - Constipation [Not Recovered/Not Resolved]
  - Weight decreased [Recovered/Resolved]
  - White blood cell count decreased [Not Recovered/Not Resolved]
  - Anaemia [Not Recovered/Not Resolved]
  - Gastritis [Not Recovered/Not Resolved]
  - Headache [Not Recovered/Not Resolved]
  - Abdominal discomfort [Not Recovered/Not Resolved]
  - Hepatitis [Not Recovered/Not Resolved]
  - Biliary dilatation [Not Recovered/Not Resolved]
  - Abdominal pain [Not Recovered/Not Resolved]
  - Inflammation [Not Recovered/Not Resolved]
  - Malaise [Unknown]
  - Haematochezia [Not Recovered/Not Resolved]
  - Fluid retention [Not Recovered/Not Resolved]
  - Ascites [Not Recovered/Not Resolved]
  - Skin exfoliation [Unknown]
  - Injection site mass [Unknown]
  - Gastrointestinal inflammation [Not Recovered/Not Resolved]
  - Immune system disorder [Not Recovered/Not Resolved]
  - Gastritis [Not Recovered/Not Resolved]
  - Muscle atrophy [Not Recovered/Not Resolved]
  - Dry skin [Not Recovered/Not Resolved]
  - Injection site mass [Not Recovered/Not Resolved]
  - Abdominal pain upper [Not Recovered/Not Resolved]
  - Sleep disorder [Unknown]
  - Skin exfoliation [Not Recovered/Not Resolved]
  - Fall [Not Recovered/Not Resolved]
  - Ligament sprain [Not Recovered/Not Resolved]
  - Limb injury [Not Recovered/Not Resolved]
  - Malnutrition [Not Recovered/Not Resolved]
  - Gastrointestinal infection [Not Recovered/Not Resolved]
  - Vomiting [Not Recovered/Not Resolved]
  - Abdominal pain [Not Recovered/Not Resolved]
  - Weight increased [Not Recovered/Not Resolved]
  - Tooth fracture [Not Recovered/Not Resolved]
  - Malabsorption [Not Recovered/Not Resolved]
  - Blood iron increased [Not Recovered/Not Resolved]
  - Injection site cyst [Not Recovered/Not Resolved]
  - Immune system disorder [Not Recovered/Not Resolved]
  - Product dose omission issue [Unknown]
  - Product supply issue [Unknown]
  - Therapy interrupted [Unknown]
  - Off label use [Unknown]

NARRATIVE: CASE EVENT DATE: 20210101
